FAERS Safety Report 23466034 (Version 1)
Quarter: 2024Q1

REPORT INFORMATION
  Report Type: Spontaneous
  Country: US (occurrence: US)
  Receive Date: 20240201
  Receipt Date: 20240201
  Transmission Date: 20240410
  Serious: No
  Sender: FDA-Public Use
  Company Number: US-SA-SAC20240127000304

PATIENT
  Age: 63 Year
  Sex: Female
  Weight: 85.27 kg

DRUGS (8)
  1. DUPIXENT [Suspect]
     Active Substance: DUPILUMAB
     Indication: Dermatitis atopic
     Dosage: 600 MG, 1X
     Route: 058
     Dates: start: 20230117, end: 20230117
  2. DUPIXENT [Suspect]
     Active Substance: DUPILUMAB
     Dosage: 300 MG, QOW
     Route: 058
     Dates: start: 2023
  3. MUCINEX [Concomitant]
     Active Substance: GUAIFENESIN
  4. HYDROXYZINE HYDROCHLORIDE [Concomitant]
     Active Substance: HYDROXYZINE HYDROCHLORIDE
  5. EXCEDRIN MIGRAINE [Concomitant]
     Active Substance: ACETAMINOPHEN\ASPIRIN\CAFFEINE
  6. TACROLIMUS [Concomitant]
     Active Substance: TACROLIMUS
  7. ALEVE [Concomitant]
     Active Substance: NAPROXEN SODIUM
  8. TELMISARTAN AND AMLODIPINE [Concomitant]
     Active Substance: AMLODIPINE BESYLATE\TELMISARTAN

REACTIONS (4)
  - Headache [Recovered/Resolved]
  - Vision blurred [Unknown]
  - Respiratory tract congestion [Unknown]
  - Blood pressure increased [Unknown]
